FAERS Safety Report 19004817 (Version 3)
Quarter: 2025Q4

REPORT INFORMATION
  Report Type: Spontaneous
  Country: CA (occurrence: CA)
  Receive Date: 20210312
  Receipt Date: 20251204
  Transmission Date: 20260117
  Serious: Yes (Life-Threatening)
  Sender: MERCK SHARP & DOHME LLC
  Company Number: None

PATIENT
  Age: 11 Month
  Sex: Male
  Weight: 10.1 kg

DRUGS (13)
  1. ZOLINZA [Suspect]
     Active Substance: VORINOSTAT
     Indication: Acute lymphocytic leukaemia
     Dosage: STRENGTH: 50 MG/ML, ADMINISTERED FROM MAY 25 TO 26, FROM JUNE 1 TO 4, AND FROM JUNE 8 TO 11, 2020
     Route: 048
     Dates: start: 20200525, end: 20200611
  2. BORTEZOMIB [Suspect]
     Active Substance: BORTEZOMIB
     Indication: Acute lymphocytic leukaemia
     Dosage: STRENGTH: 1 MG/ML, 0.44 MG, BOLUS, ADMINISTERED ON MAY 25 AND 26, AND ON JUNE 1, 4, 6, AND 11, 2020
     Route: 042
     Dates: start: 20200525, end: 20200611
  3. ASPARAGINASE [Suspect]
     Active Substance: ASPARAGINASE
     Indication: Acute lymphocytic leukaemia
     Dosage: DOSE: 1,125 UNITS, 1-HOUR IV INFUSION, ADMINISTERED ON MAY 25 AND JUNE 11, 2020
     Route: 042
     Dates: start: 20200527, end: 20200611
  4. MITOXANTRONE HYDROCHLORIDE [Suspect]
     Active Substance: MITOXANTRONE HYDROCHLORIDE
     Indication: Acute lymphocytic leukaemia
     Dosage: DOSE: 2.7 MG, 15-MINUTE IV INFUSION
     Route: 042
     Dates: start: 20200525, end: 20200526
  5. CHOLECALCIFEROL [Concomitant]
     Active Substance: CHOLECALCIFEROL
     Dosage: DOSE DESCRIPTION : DOSAGE FORM: NOT SPECIFIED
     Route: 065
  6. DEXAMETHASONE [Concomitant]
     Active Substance: DEXAMETHASONE
     Dosage: DOSE DESCRIPTION : DOSAGE FORM: NOT SPECIFIED
     Route: 065
  7. LEVOFLOXACIN [Concomitant]
     Active Substance: LEVOFLOXACIN
     Dosage: DOSE DESCRIPTION : DOSAGE FORM: NOT SPECIFIED
     Route: 065
  8. MYCAMINE [Concomitant]
     Active Substance: MICAFUNGIN SODIUM
     Dosage: DOSE DESCRIPTION : UNK
     Route: 042
  9. ONDANSETRON [Concomitant]
     Active Substance: ONDANSETRON
     Dosage: DOSE DESCRIPTION : DOSAGE FORM: NOT SPECIFIED
     Route: 065
  10. RANITIDINE [Concomitant]
     Active Substance: RANITIDINE
     Dosage: DOSE DESCRIPTION : DOSAGE FORM: NOT SPECIFIED
     Route: 065
  11. SULFAMETHOXAZOLE\TRIMETHOPRIM [Concomitant]
     Active Substance: SULFAMETHOXAZOLE\TRIMETHOPRIM
     Dosage: DOSE DESCRIPTION : DOSAGE FORM: NOT SPECIFIED
     Route: 065
  12. ZINC [Concomitant]
     Active Substance: ZINC
     Dosage: DOSE DESCRIPTION : DOSAGE FORM: NOT SPECIFIED
     Route: 065
  13. COLLOIDAL OATMEAL [Concomitant]
     Active Substance: OATMEAL

REACTIONS (3)
  - Aplastic anaemia [Recovered/Resolved]
  - Off label use [Recovered/Resolved]
  - Product use issue [Recovered/Resolved]

NARRATIVE: CASE EVENT DATE: 20200606
